FAERS Safety Report 8002285-1 (Version None)
Quarter: 2011Q4

REPORT INFORMATION
  Report Type: 
  Country: None (occurrence: None)
  Receive Date: 20111222
  Receipt Date: 20110304
  Transmission Date: 20120403
  Serious: No
  Sender: FDA-Public Use
  Company Number: US-GLAXOSMITHKLINE-A0916680A

PATIENT
  Age: 61 Year
  Sex: Female

DRUGS (1)
  1. COMMIT [Suspect]
     Indication: EX-TOBACCO USER
     Dates: end: 20110303

REACTIONS (4)
  - EXPIRED DRUG ADMINISTERED [None]
  - DRUG ADMINISTRATION ERROR [None]
  - FATIGUE [None]
  - SOMNOLENCE [None]
